FAERS Safety Report 20583226 (Version 1)
Quarter: 2022Q1

REPORT INFORMATION
  Report Type: Spontaneous
  Country: US (occurrence: US)
  Receive Date: 20220311
  Receipt Date: 20220311
  Transmission Date: 20220423
  Serious: Yes (Hospitalization, Other)
  Sender: FDA-Public Use
  Company Number: US-PARATEK PHARMACEUTICALS, INC.-2022PTK00074

PATIENT
  Sex: Female
  Weight: 49.433 kg

DRUGS (15)
  1. NUZYRA [Suspect]
     Active Substance: OMADACYCLINE
     Dosage: UNK
     Dates: start: 202108, end: 202111
  2. AZITHROMYCIN [Suspect]
     Active Substance: AZITHROMYCIN
     Dosage: UNK
     Dates: start: 202107, end: 202111
  3. CLOFAZIMINE [Suspect]
     Active Substance: CLOFAZIMINE
     Dosage: UNK
     Dates: start: 2021, end: 202111
  4. CLOFAZIMINE [Suspect]
     Active Substance: CLOFAZIMINE
     Dosage: UNK
     Dates: start: 202112
  5. IMIPENEM [Suspect]
     Active Substance: IMIPENEM
     Dosage: UNK
     Dates: start: 202107, end: 202110
  6. ACETAMINOPHEN [Concomitant]
     Active Substance: ACETAMINOPHEN
  7. CEFOXITIN [Concomitant]
     Active Substance: CEFOXITIN SODIUM
  8. DIAZEPAM [Concomitant]
     Active Substance: DIAZEPAM
     Dosage: UNK, AS NEEDED
  9. FERROUS SULFATE [Concomitant]
     Active Substance: FERROUS SULFATE
  10. FOLIC ACID [Concomitant]
     Active Substance: FOLIC ACID
  11. LACOSAMINE [Concomitant]
  12. LEVETIRACETAM [Concomitant]
     Active Substance: LEVETIRACETAM
     Dosage: 250 MG, 1X/DAY
  13. LEVOTHYROXINE [Concomitant]
     Active Substance: LEVOTHYROXINE
  14. VITAMINS [Concomitant]
     Active Substance: VITAMINS
  15. SEVELAMER [Concomitant]
     Active Substance: SEVELAMER

REACTIONS (4)
  - Blood creatinine increased [Unknown]
  - Aspartate aminotransferase increased [Unknown]
  - Alanine aminotransferase increased [Unknown]
  - Seizure [Unknown]

NARRATIVE: CASE EVENT DATE: 20211001
